FAERS Safety Report 10285331 (Version 1)
Quarter: 2014Q3

REPORT INFORMATION
  Report Type: Spontaneous
  Country: US (occurrence: US)
  Receive Date: 20140708
  Receipt Date: 20140708
  Transmission Date: 20150326
  Serious: No
  Sender: FDA-Public Use
  Company Number: US-009507513-1407USA000371

PATIENT
  Sex: Female
  Weight: 70.75 kg

DRUGS (6)
  1. LOVASTATIN. [Concomitant]
     Active Substance: LOVASTATIN
     Dosage: 1 TABLET (40 MG) ONCE DAILY WITH THE EVENING MEAL FOR 90 DAYS
     Route: 048
     Dates: start: 20140428
  2. ZOCOR [Suspect]
     Active Substance: SIMVASTATIN
     Route: 048
  3. LOSARTAN POTASSIUM AND HYDROCHLOROTHIAZIDE [Concomitant]
     Active Substance: HYDROCHLOROTHIAZIDE\LOSARTAN POTASSIUM
     Dosage: 1 TABLET ONCE DAILY IN THE MORNING FOR 90 DAYS
     Route: 048
     Dates: start: 20140428
  4. PEPCID [Concomitant]
     Active Substance: FAMOTIDINE
     Dosage: 1 TABLET (40 MG) ONCE DAILY AT BEDTIME FOR 90 DAYS
     Route: 048
     Dates: start: 20140307
  5. LISINOPRIL. [Concomitant]
     Active Substance: LISINOPRIL
     Dosage: 1 TABLET 2 TIMES A DAY FOR 90 DAYS
     Route: 048
     Dates: start: 20140428
  6. JANUVIA [Concomitant]
     Active Substance: SITAGLIPTIN PHOSPHATE
     Dosage: 1 DF,DAILY FOR 90 DAYS
     Route: 048
     Dates: start: 20140428

REACTIONS (1)
  - Myalgia [Unknown]
